FAERS Safety Report 9239717 (Version 3)
Quarter: 2013Q2

REPORT INFORMATION
  Report Type: Spontaneous
  Country: JP (occurrence: JP)
  Receive Date: 20130418
  Receipt Date: 20130528
  Transmission Date: 20140414
  Serious: Yes (Other)
  Sender: FDA-Public Use
  Company Number: JP-ASTRAZENECA-2013SE24656

PATIENT
  Age: 61 Year
  Sex: Female

DRUGS (2)
  1. XYLOCAINE WITH EPINEPHRINE [Suspect]
     Indication: NERVE BLOCK
     Dosage: 40 MG, 2 ML
     Route: 053
     Dates: start: 20130409, end: 20130409
  2. ANAPEINE [Suspect]
     Indication: NERVE BLOCK
     Dosage: 75 MG, 5 ML INTO TO SITES OF THE RIGHT THUMB BASE, 10 ML IN TOTAL
     Route: 053
     Dates: start: 20130409, end: 20130409

REACTIONS (5)
  - Chills [Recovering/Resolving]
  - Pyrexia [Recovering/Resolving]
  - Oxygen saturation decreased [Recovering/Resolving]
  - Pain in extremity [Recovered/Resolved]
  - Tremor [Recovering/Resolving]
